FAERS Safety Report 23402052 (Version 1)
Quarter: 2024Q1

REPORT INFORMATION
  Report Type: Report from Study
  Country: US (occurrence: US)
  Receive Date: 20240115
  Receipt Date: 20240115
  Transmission Date: 20240410
  Serious: No
  Sender: FDA-Public Use
  Company Number: US-BIOVITRUM-2024-US-000687

PATIENT
  Age: 74 Year
  Sex: Female

DRUGS (2)
  1. DOPTELET [Suspect]
     Active Substance: AVATROMBOPAG MALEATE
     Indication: Immune thrombocytopenia
     Dosage: 40MG DAILY
     Route: 048
     Dates: start: 202303, end: 202312
  2. DOPTELET [Suspect]
     Active Substance: AVATROMBOPAG MALEATE
     Indication: Thrombocytopenia

REACTIONS (1)
  - Nausea [Unknown]
